FAERS Safety Report 5471651-0 (Version None)
Quarter: 2007Q3

REPORT INFORMATION
  Report Type: 
  Country: None (occurrence: None)
  Receive Date: 20070928
  Receipt Date: 20070302
  Transmission Date: 20080115
  Serious: No
  Sender: FDA-Public Use
  Company Number: US-BRISTOL-MYERS SQUIBB COMPANY-13698840

PATIENT
  Age: 75 Year
  Sex: Male

DRUGS (8)
  1. DEFINITY [Suspect]
  2. DIGOXIN [Concomitant]
  3. COLACE [Concomitant]
  4. ENALAPRIL MALEATE [Concomitant]
  5. LEVOTHYROXINE SODIUM [Concomitant]
  6. METOPROLOL SUCCINATE [Concomitant]
  7. POTASSIUM CHLORIDE [Concomitant]
  8. MAGNESIUM SULFATE [Concomitant]

REACTIONS (1)
  - BACK PAIN [None]
